FAERS Safety Report 8681084 (Version 3)
Quarter: 2013Q2

REPORT INFORMATION
  Report Type: Spontaneous
  Country: CA (occurrence: CA)
  Receive Date: 20120724
  Receipt Date: 20130528
  Transmission Date: 20140414
  Serious: Yes (Other)
  Sender: FDA-Public Use
  Company Number: CHPA2012CA015405

PATIENT
  Age: 77 Year
  Sex: Female

DRUGS (2)
  1. OTRIVIN UNKNOWN [Suspect]
     Indication: NASAL CONGESTION
     Dosage: SPRAY WHEN NEEDED
     Route: 048
     Dates: start: 1962
  2. TETRACYCLINE [Concomitant]
     Dosage: UNK, UNK

REACTIONS (1)
  - Cerebrovascular accident [Recovered/Resolved]
